FAERS Safety Report 8390377-7 (Version None)
Quarter: 2012Q2

REPORT INFORMATION
  Report Type: 
  Country: None (occurrence: None)
  Receive Date: 20120515
  Receipt Date: 20120508
  Transmission Date: 20120825
  Serious: Yes (Disabling)
  Sender: FDA-Public Use
  Company Number: 2012SO024579

PATIENT
  Age: 19 Year
  Sex: Female
  Weight: 96 kg

DRUGS (1)
  1. NEXPLANON [Suspect]
     Indication: CONTRACEPTION
     Dosage: 1 DF; SBDE
     Route: 059
     Dates: start: 20120426, end: 20120508

REACTIONS (4)
  - SWELLING [None]
  - PAIN IN EXTREMITY [None]
  - HYPOAESTHESIA [None]
  - MOVEMENT DISORDER [None]
